FAERS Safety Report 15991843 (Version 1)
Quarter: 2019Q1

REPORT INFORMATION
  Report Type: Spontaneous
  Country: FR (occurrence: FR)
  Receive Date: 20190221
  Receipt Date: 20190221
  Transmission Date: 20190418
  Serious: Yes (Hospitalization, Other)
  Sender: FDA-Public Use
  Company Number: FR-PFIZER INC-2019072285

PATIENT
  Age: 78 Year
  Sex: Male

DRUGS (5)
  1. MOPRAL [OMEPRAZOLE MAGNESIUM] [Concomitant]
     Dosage: UNK
  2. ALDACTONE [Suspect]
     Active Substance: SPIRONOLACTONE
     Dosage: 25 MG, 1X/DAY
     Route: 048
     Dates: start: 20040814, end: 200510
  3. COVERSYL [PERINDOPRIL ERBUMINE] [Interacting]
     Active Substance: PERINDOPRIL ERBUMINE
     Dosage: 2 MG, 1X/DAY
     Route: 048
     Dates: start: 20040814, end: 20051001
  4. DEPAKINE [VALPROATE SODIUM] [Concomitant]
     Active Substance: VALPROATE SODIUM
     Dosage: UNK
  5. LASILIX [FUROSEMIDE] [Concomitant]
     Active Substance: FUROSEMIDE
     Dosage: UNK

REACTIONS (5)
  - Diarrhoea [Recovered/Resolved]
  - Acute kidney injury [Recovered/Resolved]
  - Peripheral ischaemia [Unknown]
  - Hyperkalaemia [Recovered/Resolved]
  - Drug interaction [Recovered/Resolved]

NARRATIVE: CASE EVENT DATE: 20051001
